FAERS Safety Report 11776592 (Version 1)
Quarter: 2015Q4

REPORT INFORMATION
  Report Type: Spontaneous
  Country: US (occurrence: None)
  Receive Date: 20151123
  Receipt Date: 20151123
  Transmission Date: 20160304
  Serious: Yes (Hospitalization)
  Sender: FDA-Public Use
  Company Number: None

PATIENT
  Age: 69 Year
  Sex: Male
  Weight: 83.64 kg

DRUGS (13)
  1. LEUCOVORIN. [Concomitant]
     Active Substance: LEUCOVORIN
  2. PANCRELIPASE (CREON) [Concomitant]
  3. ADVAIR DISKUS [Concomitant]
     Active Substance: FLUTICASONE PROPIONATE\SALMETEROL XINAFOATE
  4. ESCITALOPRAM OXALATE (LEXAPRO) [Concomitant]
  5. FOLFOX-A [Suspect]
     Active Substance: FLUOROURACIL\LEUCOVORIN CALCIUM\OXALIPLATIN\PACLITAXEL
     Indication: PANCREATIC CARCINOMA
  6. ABRAXANE [Concomitant]
     Active Substance: PACLITAXEL
  7. CHOLECALCIFEROL [Concomitant]
     Active Substance: CHOLECALCIFEROL
  8. OXALIPLATIN. [Concomitant]
     Active Substance: OXALIPLATIN
  9. VITAMIN D3 (VITAMI D3) [Concomitant]
  10. 5 FU [Concomitant]
     Active Substance: FLUOROURACIL
  11. ESOMEPRAZOLE MAGNESIUM (NEXIUM) [Concomitant]
  12. ALBUTEROL (PROVENTIL HFA, VENTOLIN) [Concomitant]
  13. ASPIRIN (ASA) [Concomitant]

REACTIONS (10)
  - Pneumonitis [None]
  - Pneumonia [None]
  - Neuropathy peripheral [None]
  - Pulmonary alveolar haemorrhage [None]
  - Acute respiratory failure [None]
  - Lymphangiosis carcinomatosa [None]
  - Malignant neoplasm progression [None]
  - Body temperature increased [None]
  - Metastases to lung [None]
  - Acute kidney injury [None]

NARRATIVE: CASE EVENT DATE: 20151102
